FAERS Safety Report 25444855 (Version 2)
Quarter: 2025Q2

REPORT INFORMATION
  Report Type: Spontaneous
  Country: US (occurrence: US)
  Receive Date: 20250617
  Receipt Date: 20250626
  Transmission Date: 20250716
  Serious: Yes (Other)
  Sender: AUROBINDO
  Company Number: US-AUROBINDO-AUR-APL-2025-029677

PATIENT
  Age: 7 Year
  Sex: Male

DRUGS (8)
  1. AZITHROMYCIN [Suspect]
     Active Substance: AZITHROMYCIN
     Indication: Product used for unknown indication
     Route: 065
  2. CLINDAMYCIN [Suspect]
     Active Substance: CLINDAMYCIN
     Indication: Product used for unknown indication
     Route: 048
  3. TIGECYCLINE [Suspect]
     Active Substance: TIGECYCLINE
     Indication: Mycobacterium abscessus infection
     Route: 042
  4. SULFAMETHOXAZOLE\TRIMETHOPRIM [Suspect]
     Active Substance: SULFAMETHOXAZOLE\TRIMETHOPRIM
     Indication: Otorrhoea
     Route: 048
  5. CIPROFLOXACIN\DEXAMETHASONE [Suspect]
     Active Substance: CIPROFLOXACIN\DEXAMETHASONE
     Indication: Otorrhoea
     Route: 065
  6. OFLOXACIN [Suspect]
     Active Substance: OFLOXACIN
     Indication: Otorrhoea
     Route: 065
  7. MUPIROCIN [Suspect]
     Active Substance: MUPIROCIN
     Indication: Product used for unknown indication
     Route: 061
  8. LINEZOLID [Suspect]
     Active Substance: LINEZOLID
     Indication: Product used for unknown indication
     Route: 065

REACTIONS (2)
  - Drug ineffective [Unknown]
  - Nausea [Unknown]
